FAERS Safety Report 11506373 (Version 1)
Quarter: 2015Q3

REPORT INFORMATION
  Report Type: Spontaneous
  Country: US (occurrence: US)
  Receive Date: 20150915
  Receipt Date: 20150915
  Transmission Date: 20151125
  Serious: No
  Sender: FDA-Public Use
  Company Number: US-ROCHE-768709

PATIENT
  Age: 11 Year
  Sex: Male
  Weight: 31.6 kg

DRUGS (7)
  1. SEVELAMER [Concomitant]
     Active Substance: SEVELAMER
     Route: 065
  2. CALCITRIOL. [Concomitant]
     Active Substance: CALCITRIOL
     Route: 048
  3. PEGASYS [Suspect]
     Active Substance: PEGINTERFERON ALFA-2A
     Indication: HEPATITIS C
     Dosage: FORM: INJECTION
     Route: 058
  4. ENALAPRIL [Concomitant]
     Active Substance: ENALAPRIL
     Route: 065
  5. PEGASYS [Suspect]
     Active Substance: PEGINTERFERON ALFA-2A
     Route: 058
  6. NEPHRO-VITE [Concomitant]
     Dosage: DOSE: HALF TABLET DAILY
     Route: 065
  7. MIRALAX [Concomitant]
     Active Substance: POLYETHYLENE GLYCOL 3350
     Route: 065

REACTIONS (7)
  - Pyrexia [Recovered/Resolved]
  - Medication error [Unknown]
  - Myalgia [Unknown]
  - Lymphocyte count decreased [Unknown]
  - Gingival ulceration [Recovered/Resolved]
  - Neutrophil count decreased [Unknown]
  - Lip disorder [Recovered/Resolved]

NARRATIVE: CASE EVENT DATE: 20101124
